FAERS Safety Report 17986912 (Version 1)
Quarter: 2020Q3

REPORT INFORMATION
  Report Type: Spontaneous
  Country: US (occurrence: US)
  Receive Date: 20200707
  Receipt Date: 20200707
  Transmission Date: 20201103
  Serious: No
  Sender: FDA-Public Use
  Company Number: US-BION-008500

PATIENT
  Age: 75 Year
  Sex: Female

DRUGS (1)
  1. BION PHARMA^S CALCITRIOL [Suspect]
     Active Substance: CALCITRIOL
     Indication: HYPOPARATHYROIDISM
     Route: 048
     Dates: start: 20190624, end: 20191115

REACTIONS (5)
  - Paraesthesia [Recovered/Resolved]
  - Withdrawal syndrome [Recovered/Resolved]
  - Product substitution issue [Unknown]
  - Heart rate irregular [Recovered/Resolved]
  - Alopecia [Recovered/Resolved]
